FAERS Safety Report 11165882 (Version 2)
Quarter: 2015Q2

REPORT INFORMATION
  Report Type: Spontaneous
  Country: CH (occurrence: CH)
  Receive Date: 20150604
  Receipt Date: 20150616
  Transmission Date: 20150821
  Serious: Yes (Other)
  Sender: FDA-Public Use
  Company Number: CH-TEVA-567882ISR

PATIENT
  Age: 59 Year
  Sex: Male

DRUGS (8)
  1. TIOTROPIUM [Concomitant]
     Active Substance: TIOTROPIUM
     Route: 055
  2. ACETYLSALICYLIC ACID [Concomitant]
     Active Substance: ASPIRIN
     Route: 065
  3. GINKGO BILOBA [Concomitant]
     Active Substance: GINKGO
     Route: 065
  4. MEFENAMIC ACID. [Suspect]
     Active Substance: MEFENAMIC ACID
     Indication: ARTHRALGIA
     Route: 065
  5. SIMVASTATIN. [Concomitant]
     Active Substance: SIMVASTATIN
     Route: 065
  6. TOLTERODINE [Concomitant]
     Active Substance: TOLTERODINE
     Route: 065
  7. AMOXICILLIN AND CLAVULANATE POTASSIUM [Suspect]
     Active Substance: AMOXICILLIN\CLAVULANATE POTASSIUM
     Indication: PHARYNGITIS STREPTOCOCCAL
     Route: 065
  8. PHENPROCOUMON [Concomitant]
     Active Substance: PHENPROCOUMON
     Route: 065

REACTIONS (14)
  - Joint swelling [Recovering/Resolving]
  - Joint stiffness [Recovering/Resolving]
  - Polyarthritis [Recovering/Resolving]
  - Headache [Unknown]
  - Skin lesion [Unknown]
  - Scleritis [Unknown]
  - Acute febrile neutrophilic dermatosis [Recovering/Resolving]
  - Pyrexia [Unknown]
  - Blood blister [Recovered/Resolved]
  - Arthralgia [Recovering/Resolving]
  - Hypersensitivity vasculitis [Unknown]
  - Feeling hot [Recovering/Resolving]
  - Skin mass [Recovered/Resolved]
  - Anaemia [Unknown]
